FAERS Safety Report 9499533 (Version 1)
Quarter: 2013Q3

REPORT INFORMATION
  Report Type: Spontaneous
  Country: US (occurrence: US)
  Receive Date: 20130905
  Receipt Date: 20130905
  Transmission Date: 20140515
  Serious: Yes (Other)
  Sender: FDA-Public Use
  Company Number: US-BRISTOL-MYERS SQUIBB COMPANY-19231612

PATIENT
  Age: 7 Decade
  Sex: Male

DRUGS (1)
  1. YERVOY [Suspect]

REACTIONS (4)
  - Deep vein thrombosis [Unknown]
  - Rash [Unknown]
  - Asthenia [Unknown]
  - Fatigue [Unknown]
